FAERS Safety Report 7314859-1 (Version None)
Quarter: 2011Q1

REPORT INFORMATION
  Report Type: 
  Country: None (occurrence: None)
  Receive Date: 20110225
  Receipt Date: 20100208
  Transmission Date: 20110831
  Serious: No
  Sender: FDA-Public Use
  Company Number: US-MYLANLABS-2010S1000368

PATIENT
  Age: 33 Year
  Sex: Male
  Weight: 90 kg

DRUGS (3)
  1. CLARAVIS [Suspect]
     Dates: end: 20100108
  2. AMNESTEEM [Suspect]
     Indication: ACNE CONGLOBATA
     Dates: end: 20100108
  3. CLARAVIS [Suspect]
     Indication: ACNE CONGLOBATA
     Dates: start: 20091113

REACTIONS (2)
  - BLOOD TRIGLYCERIDES ABNORMAL [None]
  - LIVER FUNCTION TEST ABNORMAL [None]
